FAERS Safety Report 8951202 (Version 4)
Quarter: 2013Q1

REPORT INFORMATION
  Report Type: Spontaneous
  Country: US (occurrence: IT)
  Receive Date: 20121207
  Receipt Date: 20130122
  Transmission Date: 20140127
  Serious: Yes (Hospitalization, Other)
  Sender: FDA-Public Use
  Company Number: PHHY2012IT111390

PATIENT
  Sex: Male

DRUGS (1)
  1. EXELON [Suspect]
     Indication: DEMENTIA ALZHEIMER^S TYPE
     Dosage: 1 DF X 2
     Dates: end: 2008

REACTIONS (21)
  - Grand mal convulsion [Unknown]
  - Sinus tachycardia [Unknown]
  - Breath sounds abnormal [Unknown]
  - Diverticulitis [Unknown]
  - Melaena [Unknown]
  - Iron deficiency anaemia [Unknown]
  - Microcytic anaemia [Unknown]
  - Central nervous system lesion [Unknown]
  - Cognitive disorder [Unknown]
  - Metabolic disorder [Unknown]
  - Loss of consciousness [Unknown]
  - Confusional state [Unknown]
  - Psychotic disorder [Unknown]
  - Psychomotor hyperactivity [Unknown]
  - Agitation [Unknown]
  - Haemorrhoids [Unknown]
  - Convulsion [Unknown]
  - Duodenal ulcer [Unknown]
  - Hallucination [Unknown]
  - Memory impairment [Unknown]
  - Depression [Unknown]
